FAERS Safety Report 6821233-0 (Version None)
Quarter: 2010Q3

REPORT INFORMATION
  Report Type: 
  Country: None (occurrence: None)
  Receive Date: 20100707
  Receipt Date: 20080408
  Transmission Date: 20110219
  Serious: Yes (Other)
  Sender: FDA-Public Use
  Company Number: US-PFIZER INC-2008031373

PATIENT
  Sex: Female
  Weight: 45.4 kg

DRUGS (2)
  1. ZOLOFT [Suspect]
     Indication: BIPOLAR DISORDER
     Dates: start: 20060101
  2. ZOLOFT [Suspect]
     Indication: DEPRESSION

REACTIONS (2)
  - HOMICIDE [None]
  - SUICIDAL IDEATION [None]
